FAERS Safety Report 7001472-9 (Version None)
Quarter: 2010Q3

REPORT INFORMATION
  Report Type: 
  Country: None (occurrence: None)
  Receive Date: 20100920
  Receipt Date: 20091203
  Transmission Date: 20110219
  Serious: No
  Sender: FDA-Public Use
  Company Number: US-ASTRAZENECA-2009SE30063

PATIENT
  Age: 92 Year
  Sex: Male
  Weight: 61.2 kg

DRUGS (10)
  1. SEROQUEL [Suspect]
     Indication: MEMORY IMPAIRMENT
     Route: 048
     Dates: start: 20091027
  2. SEROQUEL [Suspect]
     Route: 048
     Dates: start: 20091124
  3. SEROQUEL [Suspect]
     Route: 048
     Dates: start: 20091203
  4. FLOMAX [Concomitant]
  5. PROSCAR [Concomitant]
  6. LISINOPRIL [Concomitant]
  7. VITAMIN B-12 [Concomitant]
  8. VITAMIN D [Concomitant]
  9. COUMADIN [Concomitant]
  10. MAGNESIUM [Concomitant]

REACTIONS (4)
  - AMNESIA [None]
  - CONFUSIONAL STATE [None]
  - MUSCULOSKELETAL STIFFNESS [None]
  - NASAL CONGESTION [None]
